FAERS Safety Report 20799236 (Version 1)
Quarter: 2022Q2

REPORT INFORMATION
  Report Type: Spontaneous
  Country: NL (occurrence: NL)
  Receive Date: 20220508
  Receipt Date: 20220508
  Transmission Date: 20220721
  Serious: Yes (Hospitalization)
  Sender: FDA-Public Use
  Company Number: None

PATIENT
  Age: 79 Year
  Sex: Male
  Weight: 56 kg

DRUGS (20)
  1. FLUCONAZOLE [Suspect]
     Active Substance: FLUCONAZOLE
     Indication: Candida infection
     Dosage: 400 MILLIGRAM DAILY; 1DD400MG, DURATION : 4 DAYS , BRAND NAME NOT SPECIFIED
     Dates: start: 20220330, end: 20220403
  2. FLUCONAZOLE [Suspect]
     Active Substance: FLUCONAZOLE
     Indication: Urinary tract infection fungal
  3. BISOPROLOL [Concomitant]
     Active Substance: BISOPROLOL
     Dosage: STRENGTH : 5 MG , BRAND NAME NOT SPECIFIED , THERAPY START DATE AND END DATE : ASKU
  4. EZETIMIB/SIMVASTATINE [Concomitant]
     Dosage: STRENGTH : 10/40MG , BRAND NAME NOT SPECIFIED, THERAPY START DATE AND END DATE : ASKU
  5. LANTUS SOLOSTAR [Concomitant]
     Active Substance: INSULIN GLARGINE
     Dosage: INSULINE GLARGINE 100E/ML INJVLST / LANTUS SOLOSTAR INJ 100E/ML PEN 3ML, THERAPY START DATE AND END
  6. ISOSORBIDE MONONITRATE [Concomitant]
     Active Substance: ISOSORBIDE MONONITRATE
     Dosage: ISOSORBIDEMONONITRAAT TABLET MGA  60MG / BRAND NAME NOT SPECIFIED  , THERAPY START DATE AND END DATE
  7. OMEPRAZOLE [Concomitant]
     Active Substance: OMEPRAZOLE
     Dosage: OMEPRAZOL CAPSULE MSR 40MG / BRAND NAME NOT SPECIFIED  , THERAPY START DATE AND END DATE : ASKU
  8. CHOLECALCIFEROL [Concomitant]
     Active Substance: CHOLECALCIFEROL
     Dosage: COLECALCIFEROL CAPSULE   5600IE / BRAND NAME NOT SPECIFIED , THERAPY START DATE AND END DATE : ASKU
  9. AMIODARONE [Concomitant]
     Active Substance: AMIODARONE
     Dosage: STRENGTH : 200 MG , BRAND NAME NOT SPECIFIED, THERAPY START DATE AND END DATE : ASKU
  10. METHIMAZOLE [Concomitant]
     Active Substance: METHIMAZOLE
     Dosage: STRENGTH : 30 MG , BRAND NAME NOT SPECIFIED, THERAPY START DATE AND END DATE : ASKU
  11. ACETYLCYSTEINE [Concomitant]
     Active Substance: ACETYLCYSTEINE
     Dosage: STRENGTH : 600 MG , BRAND NAME NOT SPECIFIED, THERAPY START DATE AND END DATE : ASKU
  12. TIOTROPIUM [Concomitant]
     Active Substance: TIOTROPIUM
     Dosage: NEBULIZER  , TIOTROPIUM VERNEVELVLST 2,5UG/DO / BRAND NAME NOT SPECIFIED, THERAPY START DATE AND END
  13. BUMETANIDE [Concomitant]
     Active Substance: BUMETANIDE
     Dosage: STRENGTH : 1 MG , BRAND NAME NOT SPECIFIED, THERAPY START DATE AND END DATE : ASKU
  14. TEMAZEPAM [Concomitant]
     Active Substance: TEMAZEPAM
     Dosage: STRENGTH : 20 MG , BRAND NAME NOT SPECIFIED, THERAPY START DATE AND END DATE : ASKU
  15. MACROGOL/ SALTS [Concomitant]
     Dosage: MACROGOL/ZOUTEN PDR V DRANK (MOVIC/MOLAX/LAXT/GEN) / BRAND NAME NOT SPECIFIED, THERAPY START DATE AN
  16. OXYCODONE [Concomitant]
     Active Substance: OXYCODONE
     Dosage: STRENGTH : 5 MG , BRAND NAME NOT SPECIFIED, THERAPY START DATE AND END DATE : ASKU
  17. DIGOXIN [Concomitant]
     Active Substance: DIGOXIN
     Dosage: STRENGTH : 0.0625 MG , BRAND NAME NOT SPECIFIED, THERAPY START DATE AND END DATE : ASKU
  18. MAGNESIUMHYDROXIDE [Concomitant]
     Dosage: STRENGTH : 724 MG , BRAND NAME NOT SPECIFIED, THERAPY START DATE AND END DATE : ASKU
  19. PHENPROCOUMON [Concomitant]
     Active Substance: PHENPROCOUMON
     Dosage: STRENGTH : 3 MG , BRAND NAME NOT SPECIFIED, THERAPY START DATE AND END DATE : ASKU
  20. ACETAMINOPHEN [Concomitant]
     Active Substance: ACETAMINOPHEN
     Dosage: STRENGTH : 500 MG , BRAND NAME NOT SPECIFIED, THERAPY START DATE AND END DATE : ASKU

REACTIONS (3)
  - Hallucination, visual [Recovered/Resolved]
  - Delirium [Recovered/Resolved]
  - Hallucination, auditory [Recovered/Resolved]

NARRATIVE: CASE EVENT DATE: 20220403
